FAERS Safety Report 10214851 (Version 4)
Quarter: 2015Q4

REPORT INFORMATION
  Report Type: Report from Study
  Country: SE (occurrence: SE)
  Receive Date: 20140603
  Receipt Date: 20151228
  Transmission Date: 20160304
  Serious: Yes (Hospitalization)
  Sender: FDA-Public Use
  Company Number: SE-JNJFOC-20140413973

PATIENT
  Age: 54 Year
  Sex: Male
  Weight: 65.7 kg

DRUGS (12)
  1. PREDNISOLONE. [Concomitant]
     Active Substance: PREDNISOLONE
     Route: 048
  2. IBRUTINIB [Suspect]
     Active Substance: IBRUTINIB
     Indication: CHRONIC LYMPHOCYTIC LEUKAEMIA
     Route: 048
     Dates: start: 20130516, end: 20140412
  3. ERYTHROCYTES [Concomitant]
     Active Substance: HUMAN RED BLOOD CELL
     Route: 042
     Dates: start: 20140402, end: 20140402
  4. NOVORAPID [Concomitant]
     Active Substance: INSULIN ASPART
     Route: 058
     Dates: start: 20111210
  5. SELOKEN ZOC/ASA [Concomitant]
     Active Substance: ASPIRIN\METOPROLOL SUCCINATE
     Route: 048
     Dates: start: 20110311
  6. SIMVASTATIN. [Concomitant]
     Active Substance: SIMVASTATIN
     Route: 048
     Dates: start: 20130114
  7. BRICANYL [Concomitant]
     Active Substance: TERBUTALINE SULFATE
     Route: 055
     Dates: start: 20130128
  8. PENTACARINAT [Concomitant]
     Active Substance: PENTAMIDINE ISETHIONATE
     Route: 048
     Dates: start: 20130128
  9. FRAGMIN [Concomitant]
     Active Substance: DALTEPARIN SODIUM
     Indication: PROPHYLAXIS
     Dosage: 500 UNK 4 TIMES A DAY
     Route: 058
     Dates: start: 20120724
  10. ISOPHANE INSULIN [Concomitant]
     Active Substance: INSULIN NOS
     Dosage: 100 UNK AS NEEDED
     Route: 058
     Dates: start: 20111210
  11. NIVESTIM [Concomitant]
     Active Substance: FILGRASTIM
     Route: 058
     Dates: start: 20130904
  12. IBRUTINIB [Suspect]
     Active Substance: IBRUTINIB
     Indication: CHRONIC LYMPHOCYTIC LEUKAEMIA
     Route: 048
     Dates: start: 20140507, end: 20140513

REACTIONS (2)
  - Pyrexia [Recovered/Resolved]
  - Arterial haemorrhage [Recovered/Resolved]

NARRATIVE: CASE EVENT DATE: 20140411
